FAERS Safety Report 7415605-3 (Version None)
Quarter: 2011Q2

REPORT INFORMATION
  Report Type: 
  Country: None (occurrence: None)
  Receive Date: 20110414
  Receipt Date: 20110404
  Transmission Date: 20111010
  Serious: Yes (Death)
  Sender: FDA-Public Use
  Company Number: US-BAXTER-2011BH008930

PATIENT
  Age: 76 Year
  Sex: Male

DRUGS (1)
  1. DIANEAL [Suspect]
     Indication: PERITONEAL DIALYSIS
     Route: 033
     Dates: start: 20091013, end: 20110403

REACTIONS (4)
  - CEREBROVASCULAR ACCIDENT [None]
  - CARDIAC DISORDER [None]
  - CARDIAC FAILURE [None]
  - MYOCARDIAL INFARCTION [None]
